FAERS Safety Report 11681411 (Version 1)
Quarter: 2015Q4

REPORT INFORMATION
  Report Type: Report from Study
  Country: DE (occurrence: DE)
  Receive Date: 20151029
  Receipt Date: 20151029
  Transmission Date: 20160304
  Serious: Yes (Life-Threatening, Hospitalization, Other)
  Sender: FDA-Public Use
  Company Number: DE-ROCHE-1100525

PATIENT
  Age: 60 Year
  Sex: Female
  Weight: 56 kg

DRUGS (13)
  1. MARCUMAR [Concomitant]
     Active Substance: PHENPROCOUMON
  2. PERTUZUMAB [Suspect]
     Active Substance: PERTUZUMAB
     Indication: BREAST CANCER
     Dosage: DATE OF LAST DOSE PRIOR TO THE EVENT: 09/AUG/2012,
     Route: 042
     Dates: start: 20120809, end: 20120809
  3. SIMVASTATIN. [Concomitant]
     Active Substance: SIMVASTATIN
     Route: 065
  4. DOCETAXEL. [Suspect]
     Active Substance: DOCETAXEL
     Indication: BREAST CANCER
     Dosage: DATE OF LAST DOSE PRIOR TO SAE : 10/AUG/2012
     Route: 042
     Dates: start: 20120810, end: 20120903
  5. NOVODIGAL [Concomitant]
     Active Substance: .BETA.-ACETYLDIGOXIN
     Route: 065
  6. FRAXIPARIN [Concomitant]
     Active Substance: NADROPARIN CALCIUM
  7. ATACAND [Concomitant]
     Active Substance: CANDESARTAN CILEXETIL
  8. CARBOPLATIN. [Suspect]
     Active Substance: CARBOPLATIN
     Indication: BREAST CANCER
     Dosage: DATE OF LAST DOSE PRIOR TO SAE: 10/AUG/2012
     Route: 042
     Dates: start: 20120810, end: 20120903
  9. VERAPAMIL [Concomitant]
     Active Substance: VERAPAMIL HYDROCHLORIDE
     Route: 065
  10. TRASTUZUMAB [Suspect]
     Active Substance: TRASTUZUMAB
     Indication: BREAST CANCER
     Dosage: LOADING DOSE?LAST DOSE PRIOR TO THE EVENT 09/AUG/2012
     Route: 042
     Dates: start: 20120809, end: 20120809
  11. JANUMET [Concomitant]
     Active Substance: METFORMIN HYDROCHLORIDE\SITAGLIPTIN PHOSPHATE
  12. PERTUZUMAB [Suspect]
     Active Substance: PERTUZUMAB
     Dosage: MAINTENANCE DOSE
     Route: 042
     Dates: end: 20120903
  13. TRASTUZUMAB [Suspect]
     Active Substance: TRASTUZUMAB
     Dosage: MAINTAINANCE DOSE?LAST DOSE PRIOR TO THE EVENT 09/AUG/2012
     Route: 042
     Dates: start: 20120830, end: 20120903

REACTIONS (2)
  - Hypersensitivity [Recovered/Resolved]
  - General physical health deterioration [Recovered/Resolved]

NARRATIVE: CASE EVENT DATE: 20120809
